FAERS Safety Report 4941203-7 (Version None)
Quarter: 2006Q1

REPORT INFORMATION
  Report Type: 
  Country: None (occurrence: None)
  Receive Date: 20060310
  Receipt Date: 20060310
  Transmission Date: 20060701
  Serious: No
  Sender: FDA-Public Use
  Company Number: None

PATIENT
  Age: 49 Year
  Sex: Female

DRUGS (2)
  1. TUBERSOL [Suspect]
     Dosage: YEARLY INTRADERMAL LFA
     Route: 023
     Dates: start: 20060221
  2. PROZAC [Concomitant]

REACTIONS (3)
  - FORMICATION [None]
  - RASH ERYTHEMATOUS [None]
  - RASH PRURITIC [None]
